FAERS Safety Report 8543525-X (Version None)
Quarter: 2012Q3

REPORT INFORMATION
  Report Type: 
  Country: None (occurrence: None)
  Receive Date: 20120727
  Receipt Date: 20120725
  Transmission Date: 20120928
  Serious: Yes (Other)
  Sender: FDA-Public Use
  Company Number: PHHY2012BR034818

PATIENT
  Age: 79 Year
  Sex: Male

DRUGS (5)
  1. FORMOTEROL FUMARATE [Suspect]
     Indication: BRONCHITIS
     Dosage: ONE DF (ONE INHALATION DAILY)
     Dates: start: 20050101
  2. FORMOTEROL FUMARATE [Suspect]
     Indication: ASTHMA
  3. CLONAZEPAM [Concomitant]
     Indication: TREMOR
     Dosage: 0.5 DF, DAILY
     Dates: start: 20110501
  4. TAMSULOSIN HCL [Concomitant]
     Indication: MICTURITION DISORDER
     Dosage: 0.4 MG, QD
     Route: 048
     Dates: start: 20050101
  5. ETNA [Concomitant]
     Dosage: 2 DF, DAILY
     Route: 048
     Dates: start: 20120401

REACTIONS (3)
  - PARKINSON'S DISEASE [None]
  - TREMOR [None]
  - DEVICE BREAKAGE [None]
